FAERS Safety Report 25119275 (Version 6)
Quarter: 2025Q4

REPORT INFORMATION
  Report Type: Spontaneous
  Country: US (occurrence: US)
  Receive Date: 20250325
  Receipt Date: 20251118
  Transmission Date: 20260118
  Serious: Yes (Other)
  Sender: CSL BEHRING
  Company Number: US-BEH-2025199321

PATIENT
  Age: 59 Year
  Sex: Female

DRUGS (9)
  1. HIZENTRA [Suspect]
     Active Substance: HUMAN IMMUNOGLOBULIN G
     Indication: Immunodeficiency common variable
     Dosage: 10 G, QW
     Route: 058
     Dates: start: 20250312
  2. HIZENTRA [Suspect]
     Active Substance: HUMAN IMMUNOGLOBULIN G
     Indication: Immunodeficiency common variable
     Dosage: 10 G, QW
     Route: 058
     Dates: start: 20250312
  3. ACETAMINOPHEN [Concomitant]
     Active Substance: ACETAMINOPHEN
     Dosage: 325 MG
  4. ADVAIR HFA [Concomitant]
     Active Substance: FLUTICASONE PROPIONATE\SALMETEROL XINAFOATE
     Dosage: 250/50
  5. BERGAMOT OIL [Concomitant]
     Active Substance: BERGAMOT OIL
  6. VITAMINS [Concomitant]
     Active Substance: VITAMINS
     Dosage: UNK, QD
  7. TAMIFLU [Concomitant]
     Active Substance: OSELTAMIVIR PHOSPHATE
     Dosage: 75 MG
  8. CEFUROXIME [Concomitant]
     Active Substance: CEFUROXIME
     Dosage: 500 MG
  9. NAPROXEN [Concomitant]
     Active Substance: NAPROXEN
     Dosage: 500 MG

REACTIONS (14)
  - Drug ineffective [Not Recovered/Not Resolved]
  - Influenza [Unknown]
  - Product dose omission issue [Unknown]
  - Abdominal pain [Unknown]
  - Abdominal distension [Unknown]
  - Diarrhoea [Unknown]
  - Infusion site swelling [Unknown]
  - Constipation [Unknown]
  - Infusion site bruising [Not Recovered/Not Resolved]
  - Infusion site discharge [Not Recovered/Not Resolved]
  - Infusion site infection [Not Recovered/Not Resolved]
  - Infusion site erythema [Not Recovered/Not Resolved]
  - Infusion site swelling [Not Recovered/Not Resolved]
  - Infusion site pain [Not Recovered/Not Resolved]
